FAERS Safety Report 6017809-3 (Version None)
Quarter: 2008Q4

REPORT INFORMATION
  Report Type: 
  Country: None (occurrence: None)
  Receive Date: 20081223
  Receipt Date: 20081212
  Transmission Date: 20090506
  Serious: Yes (Other)
  Sender: FDA-Public Use
  Company Number: US-ROCHE-602462

PATIENT
  Sex: Female

DRUGS (8)
  1. BONIVA [Suspect]
     Dosage: OTHER INDICATION: TO MAKE HER BONES STRONGER
     Route: 048
     Dates: start: 20081105, end: 20081205
  2. LASIX [Concomitant]
  3. CORTIAZEM [Concomitant]
  4. COUMADIN [Concomitant]
  5. ZETIA [Concomitant]
  6. MULTI-VITAMINS [Concomitant]
  7. FISH OIL [Concomitant]
  8. MEPRAZOL [Concomitant]
     Dosage: DRUG REPORTED AS MEPROSOL

REACTIONS (6)
  - ABASIA [None]
  - BONE PAIN [None]
  - CHEST PAIN [None]
  - FALL [None]
  - MUSCULOSKELETAL PAIN [None]
  - TREMOR [None]
